FAERS Safety Report 20209009 (Version 1)
Quarter: 2021Q4

REPORT INFORMATION
  Report Type: Spontaneous
  Country: US (occurrence: US)
  Receive Date: 20211220
  Receipt Date: 20211220
  Transmission Date: 20220303
  Serious: Yes (Other)
  Sender: FDA-Public Use
  Company Number: US-ALLERGAN-2138951US

PATIENT
  Sex: Female

DRUGS (1)
  1. RESTASIS [Suspect]
     Active Substance: CYCLOSPORINE
     Indication: Dry eye
     Dosage: 2 GTT, BID
     Route: 031

REACTIONS (3)
  - Lung neoplasm malignant [Unknown]
  - Brain cancer metastatic [Unknown]
  - Headache [Unknown]

NARRATIVE: CASE EVENT DATE: 20190901
